FAERS Safety Report 4356927-2 (Version None)
Quarter: 2004Q2

REPORT INFORMATION
  Report Type: 
  Country: None (occurrence: None)
  Receive Date: 20040507
  Receipt Date: 20040427
  Transmission Date: 20050107
  Serious: Yes (Other)
  Sender: FDA-Public Use
  Company Number: 2003123931

PATIENT
  Age: 39 Year
  Sex: Female
  Weight: 60 kg

DRUGS (2)
  1. VFEND [Suspect]
     Indication: MENINGITIS CRYPTOCOCCAL
     Dosage: 2 IN 1 D, INTRAVENOUS
     Route: 042
  2. ANTIFUNGALS (ANTIFUNGALS) [Suspect]
     Indication: ILL-DEFINED DISORDER

REACTIONS (3)
  - CRYPTOCOCCOSIS [None]
  - OPTIC ATROPHY [None]
  - VISION BLURRED [None]
